FAERS Safety Report 8951619 (Version 1)
Quarter: 2012Q4

REPORT INFORMATION
  Report Type: 
  Country: GB (occurrence: GB)
  Receive Date: 20121204
  Receipt Date: 20121204
  Transmission Date: 20130627
  Serious: Yes (Life-Threatening)
  Sender: FDA-Public Use
  Company Number: GB-MYLANLABS-2012S1024091

PATIENT
  Age: 67 Year
  Sex: Female

DRUGS (3)
  1. SERTRALINE [Suspect]
     Indication: DEPRESSION
     Route: 048
  2. ASPIRIN [Suspect]
     Indication: ACUTE MYOCARDIAL INFARCTION
  3. CLOPIDOGREL [Concomitant]
     Indication: ACUTE MYOCARDIAL INFARCTION

REACTIONS (3)
  - Drug interaction [Unknown]
  - Gastrointestinal haemorrhage [Recovered/Resolved]
  - Medication error [Unknown]
